FAERS Safety Report 9621405 (Version 1)
Quarter: 2013Q4

REPORT INFORMATION
  Report Type: Spontaneous
  Country: US (occurrence: US)
  Receive Date: 20131015
  Receipt Date: 20131015
  Transmission Date: 20140711
  Serious: No
  Sender: FDA-Public Use
  Company Number: US-PFIZER INC-2013292200

PATIENT
  Age: 65 Year
  Sex: Female

DRUGS (10)
  1. SUTENT [Suspect]
     Indication: RENAL CANCER
     Dosage: 12.5 MG, UNK
  2. ACTIGALL [Concomitant]
     Dosage: UNK
  3. BENADRYL [Concomitant]
     Dosage: UNK
  4. BENICAR [Concomitant]
     Dosage: UNK
  5. BYSTOLIC [Concomitant]
     Dosage: UNK
  6. DICYCLOMINE HCL [Concomitant]
     Dosage: UNK
  7. NOVOLOG [Concomitant]
     Dosage: UNK
  8. OXYCODONE-ACETAMINOPHEN [Concomitant]
     Dosage: UNK
  9. PROCRIT [Concomitant]
     Dosage: UNK
  10. RENVELA [Concomitant]
     Dosage: UNK

REACTIONS (2)
  - Headache [Unknown]
  - Hypertension [Unknown]
